FAERS Safety Report 5293117-3 (Version None)
Quarter: 2007Q2

REPORT INFORMATION
  Report Type: 
  Country: None (occurrence: None)
  Receive Date: 20070411
  Receipt Date: 20070330
  Transmission Date: 20071010
  Serious: Yes (Other)
  Sender: FDA-Public Use
  Company Number: PHEH2007US03559

PATIENT
  Age: 69 Year
  Sex: Male
  Weight: 99.773 kg

DRUGS (1)
  1. HYDROCHLOROTHIAZIDE [Suspect]
     Indication: HYPERTENSION
     Dosage: UNK, QD
     Dates: start: 20050101, end: 20050101

REACTIONS (4)
  - ACTIVITIES OF DAILY LIVING IMPAIRED [None]
  - DIABETES MELLITUS NON-INSULIN-DEPENDENT [None]
  - HYPERSOMNIA [None]
  - LETHARGY [None]
